FAERS Safety Report 10912491 (Version 1)
Quarter: 2015Q1

REPORT INFORMATION
  Report Type: Spontaneous
  Country: US (occurrence: None)
  Receive Date: 20150310
  Receipt Date: 20150310
  Transmission Date: 20150721
  Serious: Yes (Other)
  Sender: FDA-Public Use
  Company Number: BD-2015-0220

PATIENT
  Weight: 7.2 kg

DRUGS (2)
  1. BUTORPHANOL (BUTORPHANOL) [Concomitant]
  2. MORPHINE SULFATE (MORPHINE SULFATE) UNKNOWN [Suspect]
     Active Substance: MORPHINE SULFATE
     Indication: PRODUCT USED FOR UNKNOWN INDICATION

REACTIONS (2)
  - Sedation [None]
  - Obstructive airways disorder [None]
